FAERS Safety Report 14947835 (Version 1)
Quarter: 2018Q2

REPORT INFORMATION
  Report Type: Spontaneous
  Country: CN (occurrence: CN)
  Receive Date: 20180529
  Receipt Date: 20180529
  Transmission Date: 20180711
  Serious: Yes (Other)
  Sender: FDA-Public Use
  Company Number: CN-ASTRAZENECA-2018SE66363

PATIENT
  Sex: Female
  Weight: 50 kg

DRUGS (3)
  1. AMINOPHYLLINE. [Concomitant]
     Active Substance: AMINOPHYLLINE
     Indication: WHEEZING
     Route: 041
     Dates: start: 20180302, end: 20180307
  2. BUDESONIDE SUSPENSION [Suspect]
     Active Substance: BUDESONIDE
     Route: 055
     Dates: start: 20180302, end: 20180304
  3. AMBROXOL HYDROCHLORIDE [Concomitant]
     Active Substance: AMBROXOL HYDROCHLORIDE
     Indication: INCREASED VISCOSITY OF BRONCHIAL SECRETION
     Route: 041
     Dates: start: 20180302, end: 20180307

REACTIONS (3)
  - Seizure [Recovered/Resolved]
  - Pain in extremity [Recovered/Resolved]
  - Pharyngeal disorder [Recovered/Resolved]
